FAERS Safety Report 20553607 (Version 1)
Quarter: 2022Q1

REPORT INFORMATION
  Report Type: Spontaneous
  Country: US (occurrence: US)
  Receive Date: 20220304
  Receipt Date: 20220304
  Transmission Date: 20220423
  Serious: Yes (Other)
  Sender: FDA-Public Use
  Company Number: US-SA-SAC20220302000002

PATIENT
  Age: 50 Year
  Sex: Male

DRUGS (1)
  1. ZANTAC [Suspect]
     Active Substance: RANITIDINE HYDROCHLORIDE
     Indication: Dyspepsia
     Dosage: 150 MG, OTHER
     Route: 065
     Dates: start: 200501, end: 201912

REACTIONS (2)
  - Pancreatic carcinoma stage III [Unknown]
  - Gallbladder cancer stage III [Unknown]

NARRATIVE: CASE EVENT DATE: 20140201
